FAERS Safety Report 4818757-4 (Version None)
Quarter: 2005Q4

REPORT INFORMATION
  Report Type: 
  Country: None (occurrence: None)
  Receive Date: 20051031
  Receipt Date: 20051019
  Transmission Date: 20060501
  Serious: Yes (Hospitalization, Other)
  Sender: FDA-Public Use
  Company Number: HQWYE735829SEP05

PATIENT
  Age: 56 Year
  Sex: Male

DRUGS (2)
  1. PROTONIX [Suspect]
     Dosage: 40 MG 2X PER 1 DAY, INTRAVENOUS
     Route: 042
     Dates: start: 20050919, end: 20050923
  2. LOVENOX [Concomitant]

REACTIONS (8)
  - GASTRIC ULCER [None]
  - GASTROINTESTINAL HAEMORRHAGE [None]
  - HAEMATOCRIT DECREASED [None]
  - HAEMOGLOBIN DECREASED [None]
  - NAUSEA [None]
  - OBSTRUCTION GASTRIC [None]
  - POST PROCEDURAL COMPLICATION [None]
  - VOMITING [None]
